FAERS Safety Report 6076762-7 (Version None)
Quarter: 2009Q1

REPORT INFORMATION
  Report Type: 
  Country: None (occurrence: None)
  Receive Date: 20090213
  Receipt Date: 20090203
  Transmission Date: 20090719
  Serious: Yes (Other)
  Sender: FDA-Public Use
  Company Number: ES-JNJFOC-20090201510

PATIENT
  Sex: Female

DRUGS (9)
  1. REMICADE [Suspect]
     Indication: PSORIATIC ARTHROPATHY
     Route: 042
  2. METHOTREXATE [Concomitant]
  3. ACFOL [Concomitant]
  4. OMEPRAZOLE [Concomitant]
  5. BIFPHOSPHONATES [Concomitant]
  6. CALCIUM + VITAMIN D [Concomitant]
  7. PARACETAMOL [Concomitant]
  8. CYCLOSPORINE [Concomitant]
  9. POLARAMINE [Concomitant]

REACTIONS (1)
  - MYCOSIS FUNGOIDES [None]
